FAERS Safety Report 8514930-2 (Version None)
Quarter: 2012Q3

REPORT INFORMATION
  Report Type: 
  Country: None (occurrence: None)
  Receive Date: 20120717
  Receipt Date: 20120705
  Transmission Date: 20120928
  Serious: Yes (Disabling)
  Sender: FDA-Public Use
  Company Number: US-ROCHE-1085030

PATIENT
  Sex: Female
  Weight: 65.83 kg

DRUGS (1)
  1. HERCEPTIN [Suspect]
     Indication: BREAST CANCER METASTATIC
     Dosage: THERAPY WAS ONGOING
     Route: 042
     Dates: start: 20120420

REACTIONS (3)
  - NAUSEA [None]
  - NEUROPATHY PERIPHERAL [None]
  - BLINDNESS UNILATERAL [None]
